FAERS Safety Report 8338003-7 (Version None)
Quarter: 2012Q2

REPORT INFORMATION
  Report Type: 
  Country: None (occurrence: None)
  Receive Date: 20120504
  Receipt Date: 20120426
  Transmission Date: 20120825
  Serious: Yes (Other)
  Sender: FDA-Public Use
  Company Number: JP-JNJFOC-20120212685

PATIENT
  Sex: Female
  Weight: 50 kg

DRUGS (23)
  1. WARFARIN POTASSIUM [Interacting]
     Dosage: 1 PER 1 DAY
     Route: 048
     Dates: start: 20111007, end: 20111011
  2. TEGRETOL [Concomitant]
     Route: 048
  3. TRAMADOL HYDROCHLORIDE AND ACETAMINOPHEN [Suspect]
     Dosage: 2 DF X 1 PER 1 DAY
     Route: 048
     Dates: start: 20110829, end: 20110914
  4. TRAMADOL HYDROCHLORIDE AND ACETAMINOPHEN [Suspect]
     Dosage: 1 DF X 1 PER 1 DAY
     Route: 048
     Dates: start: 20120118, end: 20120123
  5. ZETIA [Concomitant]
     Route: 048
  6. CRESTOR [Concomitant]
     Route: 048
  7. KAMAG G [Concomitant]
     Route: 048
  8. WARFARIN POTASSIUM [Interacting]
     Dosage: 1 PER 1 DAY
     Route: 048
     Dates: start: 20111012, end: 20111026
  9. DIGOXIN [Concomitant]
     Route: 065
  10. LANSOPRAZOLE [Concomitant]
     Route: 048
  11. AMITRIPTYLINE HCL [Concomitant]
     Route: 048
  12. TRAMADOL HYDROCHLORIDE AND ACETAMINOPHEN [Suspect]
     Indication: TRIGEMINAL NEURALGIA
     Dosage: 1 DF X 1 PER 1 DAY
     Route: 048
     Dates: start: 20110826, end: 20110828
  13. WARFARIN POTASSIUM [Interacting]
     Indication: PRODUCT USED FOR UNKNOWN INDICATION
     Dosage: 1 PER 1 DAY
     Route: 048
     Dates: start: 20110803, end: 20111005
  14. TANATRIL [Concomitant]
     Route: 048
  15. NEUROTROPIN [Concomitant]
     Route: 048
  16. TRAMADOL HYDROCHLORIDE AND ACETAMINOPHEN [Suspect]
     Dosage: 2 DF X 1 PER 1 DAY
     Route: 048
     Dates: start: 20120124, end: 20120215
  17. PRORENAL [Concomitant]
     Route: 048
  18. TRAMADOL HYDROCHLORIDE AND ACETAMINOPHEN [Suspect]
     Dosage: 3 DF X 1 PER 1 DAY
     Route: 048
     Dates: start: 20110915, end: 20111006
  19. WARFARIN SODIUM [Interacting]
     Dosage: 1 PER 1 DAY
     Route: 048
     Dates: start: 20120229, end: 20120229
  20. AMLODIPINE BESYLATE [Concomitant]
     Route: 048
  21. WARFARIN SODIUM [Interacting]
     Dosage: 1 PER 1 DAY
     Route: 048
     Dates: start: 20111027, end: 20120215
  22. TEGRETOL [Concomitant]
     Route: 048
  23. ASPIRIN [Concomitant]
     Route: 048

REACTIONS (3)
  - PLATELET COUNT DECREASED [None]
  - PROTHROMBIN TIME PROLONGED [None]
  - DRUG INTERACTION [None]
